FAERS Safety Report 12600809 (Version 1)
Quarter: 2016Q3

REPORT INFORMATION
  Report Type: Report from Study
  Country: US (occurrence: US)
  Receive Date: 20160727
  Receipt Date: 20160727
  Transmission Date: 20161109
  Serious: No
  Sender: FDA-Public Use
  Company Number: US-AMGEN-USASL2016096022

PATIENT
  Age: 65 Year
  Sex: Female

DRUGS (3)
  1. ENBREL [Suspect]
     Active Substance: ETANERCEPT
     Indication: RHEUMATOID ARTHRITIS
     Dosage: UNK UNK, UNK
     Route: 065
  2. METHOTREXATE. [Concomitant]
     Active Substance: METHOTREXATE
     Dosage: 1 MG, UNK
  3. METHOTREXATE. [Concomitant]
     Active Substance: METHOTREXATE
     Dosage: 0.6 MG, UNK

REACTIONS (4)
  - Injection site reaction [Not Recovered/Not Resolved]
  - Impaired healing [Unknown]
  - Laceration [Unknown]
  - Arthropod bite [Unknown]
